FAERS Safety Report 9486449 (Version 10)
Quarter: 2015Q1

REPORT INFORMATION
  Report Type: Report from Study
  Country: US (occurrence: US)
  Receive Date: 20130829
  Receipt Date: 20150217
  Transmission Date: 20150721
  Serious: Yes (Other)
  Sender: FDA-Public Use
  Company Number: US-SANOFI-AVENTIS-2013SA081472

PATIENT
  Age: 59 Year
  Sex: Female

DRUGS (21)
  1. AUBAGIO [Suspect]
     Active Substance: TERIFLUNOMIDE
     Indication: MULTIPLE SCLEROSIS
     Route: 048
  2. LISINOPRIL AND HYDROCHLOROTHIAZIDE [Suspect]
     Active Substance: HYDROCHLOROTHIAZIDE\LISINOPRIL
     Indication: BLOOD PRESSURE
     Dosage: 20-12
     Route: 065
  3. NEXIUM [Concomitant]
     Active Substance: ESOMEPRAZOLE MAGNESIUM
  4. TIZANIDINE (TIZANIDINE) [Concomitant]
     Active Substance: TIZANIDINE
  5. VITAMIN D3 [Concomitant]
     Active Substance: CHOLECALCIFEROL
  6. AUBAGIO [Suspect]
     Active Substance: TERIFLUNOMIDE
     Indication: MULTIPLE SCLEROSIS
     Route: 048
     Dates: start: 20130726
  7. AMLODIPINE [Concomitant]
     Active Substance: AMLODIPINE BESYLATE
  8. CETIRIZINE [Concomitant]
     Active Substance: CETIRIZINE HYDROCHLORIDE
  9. AUBAGIO [Suspect]
     Active Substance: TERIFLUNOMIDE
     Indication: MULTIPLE SCLEROSIS
     Route: 048
  10. ATENOLOL. [Concomitant]
     Active Substance: ATENOLOL
     Indication: BLOOD PRESSURE
     Route: 065
  11. BUSPIRONE HYDROCHLORIDE. [Concomitant]
     Active Substance: BUSPIRONE HYDROCHLORIDE
  12. SINGULAIR [Concomitant]
     Active Substance: MONTELUKAST SODIUM
  13. OXYCODONE [Concomitant]
     Active Substance: OXYCODONE
  14. ALL OTHER THERAPEUTIC PRODUCTS [Concomitant]
     Active Substance: UNSPECIFIED INGREDIENT
  15. ZOLPIDEM [Concomitant]
     Active Substance: ZOLPIDEM\ZOLPIDEM TARTRATE
     Indication: SLEEP DISORDER
     Dosage: FREQUENCY - QHS?SOMETIMES SHE BREAKS THEM IN HALF AND ONLY TAKES ONE HALF TABLETS QHS.
     Route: 065
  16. ALPRAZOLAM. [Concomitant]
     Active Substance: ALPRAZOLAM
     Dosage: 20 MINUTES BEFORE SHE TAKES HER AUBAGIO
     Route: 065
  17. PANTHENOL/RETINOL/THIAMINE HYDROCHLORIDE/ASCORBIC ACID/ERGOCALCIFEROL/FOLIC ACID/RIBOFLAVIN/NICOTINA [Concomitant]
  18. DULOXETINE HYDROCHLORIDE. [Concomitant]
     Active Substance: DULOXETINE HYDROCHLORIDE
  19. ACTONEL [Concomitant]
     Active Substance: RISEDRONATE SODIUM
  20. CARAFATE [Concomitant]
     Active Substance: SUCRALFATE
  21. MUCINEX [Concomitant]
     Active Substance: GUAIFENESIN

REACTIONS (38)
  - Diabetes mellitus [Not Recovered/Not Resolved]
  - Sepsis [Unknown]
  - Hot flush [Not Recovered/Not Resolved]
  - White blood cell count increased [Unknown]
  - Dyskinesia [Unknown]
  - Diarrhoea [Unknown]
  - Weight decreased [Unknown]
  - Burning sensation [Unknown]
  - Haematoma [Unknown]
  - Skin ulcer [Recovering/Resolving]
  - Fall [Unknown]
  - Confusional state [Not Recovered/Not Resolved]
  - Swelling [Unknown]
  - Fungal infection [Not Recovered/Not Resolved]
  - Tremor [Unknown]
  - Tremor [Unknown]
  - Osteomyelitis [Not Recovered/Not Resolved]
  - Bedridden [Unknown]
  - Knee arthroplasty [Unknown]
  - Anxiety [Not Recovered/Not Resolved]
  - Floating patella [Unknown]
  - Ear disorder [Unknown]
  - Optic nerve injury [Unknown]
  - Diplopia [Unknown]
  - Cataract [Unknown]
  - Swollen tongue [Unknown]
  - Intestinal obstruction [Unknown]
  - Nervousness [Unknown]
  - Irritability [Unknown]
  - Overweight [Unknown]
  - Poor quality sleep [Unknown]
  - Burning sensation [Recovering/Resolving]
  - Chills [Unknown]
  - Infection [Unknown]
  - Multiple sclerosis [Unknown]
  - Cough [Unknown]
  - Asthenia [Unknown]
  - Drug dose omission [Unknown]

NARRATIVE: CASE EVENT DATE: 2013
